FAERS Safety Report 23669138 (Version 1)
Quarter: 2024Q1

REPORT INFORMATION
  Report Type: Spontaneous
  Country: US (occurrence: US)
  Receive Date: 20240325
  Receipt Date: 20240325
  Transmission Date: 20240410
  Serious: Yes (Hospitalization)
  Sender: FDA-Public Use
  Company Number: US-TEVA-VS-3173468

PATIENT
  Age: 20 Year
  Sex: Male

DRUGS (6)
  1. EPINEPHRINE [Suspect]
     Active Substance: EPINEPHRINE
     Indication: Anaphylactic reaction
     Dosage: INITIAL DOSE UNKNOWN
     Route: 050
  2. EPINEPHRINE [Suspect]
     Active Substance: EPINEPHRINE
     Indication: Hypotension
     Dosage: GRADUALLY INCREASED TO?0.15 ?G/KG/MIN
     Route: 050
  3. EPINEPHRINE [Suspect]
     Active Substance: EPINEPHRINE
     Dosage: SELF ADMINISTERED; STARTED RECEIVING AT HOSPITAL; DOSE UNKNOWN
     Route: 030
  4. METHYLPREDNISOLONE [Concomitant]
     Active Substance: METHYLPREDNISOLONE
     Indication: Anaphylactic reaction
     Route: 042
  5. LORATADINE [Suspect]
     Active Substance: LORATADINE
     Indication: Anaphylactic reaction
     Route: 065
  6. PREDNISONE [Suspect]
     Active Substance: PREDNISONE
     Indication: Anaphylactic reaction
     Route: 065

REACTIONS (4)
  - Lactic acidosis [Recovered/Resolved]
  - Hypertension [Recovered/Resolved]
  - Intentional product misuse [Unknown]
  - Drug ineffective [Unknown]
